FAERS Safety Report 6745147-X (Version None)
Quarter: 2010Q2

REPORT INFORMATION
  Report Type: 
  Country: None (occurrence: None)
  Receive Date: 20100526
  Receipt Date: 20100513
  Transmission Date: 20101027
  Serious: Yes (Hospitalization)
  Sender: FDA-Public Use
  Company Number: 2010SP001410

PATIENT
  Age: 36 Year
  Sex: Female
  Weight: 70.2 kg

DRUGS (4)
  1. CICLESONIDE HFA [Suspect]
     Indication: RHINITIS PERENNIAL
     Dosage: 160 UG; QD; NASAL
     Route: 045
     Dates: start: 20100415, end: 20100512
  2. BLINDED THERAPY [Concomitant]
  3. IBUPROFEN [Concomitant]
  4. ITCH-X [Concomitant]

REACTIONS (1)
  - ECTOPIC PREGNANCY [None]
